FAERS Safety Report 16493957 (Version 1)
Quarter: 2019Q2

REPORT INFORMATION
  Report Type: Report from Study
  Country: GT (occurrence: GT)
  Receive Date: 20190628
  Receipt Date: 20190628
  Transmission Date: 20190711
  Serious: Yes (Other)
  Sender: FDA-Public Use
  Company Number: GT-SA-2019SA173438

PATIENT
  Age: 72 Year
  Sex: Female
  Weight: 78.01 kg

DRUGS (1)
  1. HYDROCHLOROTHIAZIDE/IRBESARTAN [Suspect]
     Active Substance: HYDROCHLOROTHIAZIDE\IRBESARTAN
     Indication: HYPERTENSION
     Dosage: 1 DF (300 MG OF IRBESARTAN + 10 MG OF HYDROCHLOROTHIAZIDE), QD
     Route: 048
     Dates: start: 2009

REACTIONS (3)
  - Eye disorder [Recovered/Resolved]
  - Eye infection bacterial [Not Recovered/Not Resolved]
  - Eye operation [Not Recovered/Not Resolved]

NARRATIVE: CASE EVENT DATE: 2013
